FAERS Safety Report 20152099 (Version 2)
Quarter: 2021Q4

REPORT INFORMATION
  Report Type: Spontaneous
  Country: JP (occurrence: JP)
  Receive Date: 20211206
  Receipt Date: 20211230
  Transmission Date: 20220303
  Serious: Yes (Other)
  Sender: FDA-Public Use
  Company Number: JP-TEVA-2021-JP-006055J

PATIENT
  Age: 71 Year
  Sex: Male

DRUGS (2)
  1. PIOGLITAZONE [Suspect]
     Active Substance: PIOGLITAZONE
     Indication: Product used for unknown indication
     Route: 048
  2. ATORVASTATIN [Suspect]
     Active Substance: ATORVASTATIN
     Indication: Product used for unknown indication
     Dosage: ATORVASTATIN TABLET 10MG ^TYK^
     Route: 048

REACTIONS (1)
  - Interstitial lung disease [Not Recovered/Not Resolved]
